FAERS Safety Report 9648928 (Version 1)
Quarter: 2013Q4

REPORT INFORMATION
  Report Type: Spontaneous
  Country: US (occurrence: None)
  Receive Date: 20131018
  Receipt Date: 20131018
  Transmission Date: 20140711
  Serious: No
  Sender: FDA-Public Use
  Company Number: AEGR000111

PATIENT
  Age: 58 Year
  Sex: Female
  Weight: 71.2 kg

DRUGS (4)
  1. JUXTAPID [Suspect]
     Indication: TYPE IIA HYPERLIPIDAEMIA
     Route: 048
     Dates: start: 20130712
  2. SYNTHROID ( LEVOTHYROXINE SODIUM) [Concomitant]
  3. ACTOS ( PIOGLITAZONE HYDROCHLORIDE) [Concomitant]
  4. GLIPIZIDE ( GLIPIZIDE) [Concomitant]

REACTIONS (1)
  - Anxiety [None]
